FAERS Safety Report 20868760 (Version 1)
Quarter: 2022Q2

REPORT INFORMATION
  Report Type: Spontaneous
  Country: US (occurrence: US)
  Receive Date: 20220524
  Receipt Date: 20220524
  Transmission Date: 20220721
  Serious: No
  Sender: FDA-Public Use
  Company Number: US-PFIZER INC-2017307509

PATIENT
  Age: 66 Year
  Sex: Female

DRUGS (3)
  1. SKELAXIN [Suspect]
     Active Substance: METAXALONE
     Indication: Fibromyalgia
     Dosage: 1 TABLET (800 MG TOTAL) BY MOUTH FOUR TIMES DAILY AS NEEDED
     Route: 048
     Dates: start: 20170627
  2. SKELAXIN [Suspect]
     Active Substance: METAXALONE
     Dosage: 1 TABLET (800 MG) BY MOUTH FOUR TIMES DAILY AS NEEDED (MUSCLE SPASM)
     Route: 048
     Dates: start: 20201130
  3. SKELAXIN [Suspect]
     Active Substance: METAXALONE
     Dosage: 1 TABLET (800 MG) BY MOUTH FOUR TIMES DAILY AS NEEDED (MUSCLE SPASM)
     Route: 048
     Dates: start: 20201223

REACTIONS (1)
  - COVID-19 [Unknown]
